FAERS Safety Report 24819513 (Version 1)
Quarter: 2025Q1

REPORT INFORMATION
  Report Type: Spontaneous
  Country: US (occurrence: US)
  Receive Date: 20250108
  Receipt Date: 20250108
  Transmission Date: 20250408
  Serious: Yes (Hospitalization)
  Sender: DR REDDYS
  Company Number: None

PATIENT
  Age: 58 Year
  Sex: Female

DRUGS (1)
  1. MELOXICAM [Suspect]
     Active Substance: MELOXICAM
     Indication: Osteoarthritis

REACTIONS (2)
  - Intestinal diaphragm disease [Unknown]
  - Small intestinal obstruction [Unknown]
